FAERS Safety Report 18388485 (Version 1)
Quarter: 2020Q4

REPORT INFORMATION
  Report Type: Other
  Country: US (occurrence: US)
  Receive Date: 20201015
  Receipt Date: 20201015
  Transmission Date: 20210114
  Serious: Yes (Other)
  Sender: FDA-Public Use
  Company Number: US-EMD SERONO-9190973

PATIENT
  Age: 71 Year
  Sex: Male

DRUGS (3)
  1. NOGAPENDEKIN ALFA. [Concomitant]
     Active Substance: NOGAPENDEKIN ALFA
     Indication: NEUROENDOCRINE CARCINOMA OF THE SKIN
     Dates: start: 201808
  2. BAVENCIO [Suspect]
     Active Substance: AVELUMAB
     Dates: start: 201807
  3. BAVENCIO [Suspect]
     Active Substance: AVELUMAB
     Indication: NEUROENDOCRINE CARCINOMA OF THE SKIN
     Dates: start: 201805, end: 201806

REACTIONS (1)
  - Metastases to bone [Unknown]

NARRATIVE: CASE EVENT DATE: 201810
